FAERS Safety Report 21456882 (Version 2)
Quarter: 2022Q4

REPORT INFORMATION
  Report Type: Spontaneous
  Country: FR (occurrence: FR)
  Receive Date: 20221014
  Receipt Date: 20221026
  Transmission Date: 20230112
  Serious: Yes (Hospitalization, Other)
  Sender: FDA-Public Use
  Company Number: FR-NOVARTISPH-NVSC2022FR227410

PATIENT
  Age: 10 Year
  Sex: Male

DRUGS (14)
  1. MYCOPHENOLATE MOFETIL [Suspect]
     Active Substance: MYCOPHENOLATE MOFETIL
     Indication: Prophylaxis against graft versus host disease
     Dosage: UNK
     Route: 048
     Dates: start: 20220626
  2. CYCLOSPORINE [Suspect]
     Active Substance: CYCLOSPORINE
     Indication: Prophylaxis against graft versus host disease
     Dosage: UNK
     Route: 042
     Dates: start: 20220626
  3. CYCLOPHOSPHAMIDE [Suspect]
     Active Substance: CYCLOPHOSPHAMIDE
     Indication: Prophylaxis against graft versus host disease
     Dosage: 1.7 G
     Route: 042
     Dates: start: 20220624
  4. CYCLOPHOSPHAMIDE [Suspect]
     Active Substance: CYCLOPHOSPHAMIDE
     Dosage: 1.7 G
     Route: 042
     Dates: start: 20220625
  5. DEXAMETHASONE [Suspect]
     Active Substance: DEXAMETHASONE
     Indication: Acute lymphocytic leukaemia
     Dosage: 11 MG
     Route: 048
     Dates: start: 20220406, end: 20220527
  6. DEXAMETHASONE [Suspect]
     Active Substance: DEXAMETHASONE
     Dosage: 5.5 MG
     Route: 042
     Dates: start: 20220406, end: 20220523
  7. INOTUZUMAB OZOGAMICIN [Suspect]
     Active Substance: INOTUZUMAB OZOGAMICIN
     Indication: Acute lymphocytic leukaemia
     Dosage: 0.55 MG
     Route: 042
     Dates: start: 20220406, end: 20220523
  8. METHYLPREDNISOLONE SODIUM SUCCINATE [Suspect]
     Active Substance: METHYLPREDNISOLONE SODIUM SUCCINATE
     Indication: Acute lymphocytic leukaemia
     Dosage: 31 MG
     Route: 042
     Dates: start: 20220414, end: 20220516
  9. ETOPOSIDE [Suspect]
     Active Substance: ETOPOSIDE
     Indication: Drug therapy
     Dosage: 2040 MG
     Route: 042
     Dates: start: 20220618, end: 20220618
  10. METHOTREXATE [Suspect]
     Active Substance: METHOTREXATE
     Indication: Acute lymphocytic leukaemia
     Dosage: UNK
     Route: 037
     Dates: start: 20220414, end: 20220603
  11. VINCRISTINE [Suspect]
     Active Substance: VINCRISTINE
     Indication: Acute lymphocytic leukaemia
     Dosage: UNK
     Route: 042
     Dates: start: 20220408, end: 20220601
  12. PIPERACILLIN SODIUM\TAZOBACTAM SODIUM [Concomitant]
     Active Substance: PIPERACILLIN SODIUM\TAZOBACTAM SODIUM
     Indication: Febrile bone marrow aplasia
     Dosage: UNK
     Route: 042
     Dates: start: 20220621, end: 20220712
  13. URSODIOL [Concomitant]
     Active Substance: URSODIOL
     Indication: Prophylaxis
     Dosage: UNK
     Route: 048
     Dates: start: 20220626, end: 20220719
  14. VANCOMYCIN [Concomitant]
     Active Substance: VANCOMYCIN
     Indication: Febrile bone marrow aplasia
     Dosage: UNK
     Route: 042
     Dates: start: 20220628, end: 20220706

REACTIONS (7)
  - Venoocclusive disease [Recovered/Resolved]
  - Platelet count decreased [Unknown]
  - Liver disorder [Unknown]
  - Blood albumin decreased [Unknown]
  - Hepatic pain [Unknown]
  - Weight increased [Recovering/Resolving]
  - Oedema peripheral [Unknown]

NARRATIVE: CASE EVENT DATE: 20220627
